FAERS Safety Report 6750254-1 (Version None)
Quarter: 2010Q2

REPORT INFORMATION
  Report Type: 
  Country: None (occurrence: None)
  Receive Date: 20100527
  Receipt Date: 20100510
  Transmission Date: 20101027
  Serious: Yes (Hospitalization)
  Sender: FDA-Public Use
  Company Number: 10-ADE-SU-0020-ACT

PATIENT
  Age: 70 Year
  Sex: Female

DRUGS (3)
  1. H P ACTHAR [Suspect]
     Indication: MULTIPLE SCLEROSIS
     Dosage: 80 IU SC QD X 5 DAYS
     Route: 058
     Dates: start: 20100501, end: 20100505
  2. REBIF [Concomitant]
  3. ASPIRIN [Concomitant]

REACTIONS (4)
  - DIZZINESS [None]
  - FALL [None]
  - NAUSEA [None]
  - TREATMENT NONCOMPLIANCE [None]
